FAERS Safety Report 11009353 (Version 1)
Quarter: 2015Q2

REPORT INFORMATION
  Report Type: Spontaneous
  Country: US (occurrence: US)
  Receive Date: 20150410
  Receipt Date: 20150410
  Transmission Date: 20150821
  Serious: No
  Sender: FDA-Public Use
  Company Number: US-BAUSCH-BL-2014-006197

PATIENT
  Age: 74 Year
  Sex: Female

DRUGS (1)
  1. ZYCLARA [Suspect]
     Active Substance: IMIQUIMOD
     Indication: ACTINIC KERATOSIS
     Dosage: APPLIED EVERY NIGHT FOR 2 WEEKS
     Route: 061
     Dates: start: 20140912, end: 201409

REACTIONS (1)
  - Scab [Not Recovered/Not Resolved]

NARRATIVE: CASE EVENT DATE: 20140926
